FAERS Safety Report 5329645-1 (Version None)
Quarter: 2007Q2

REPORT INFORMATION
  Report Type: 
  Country: None (occurrence: None)
  Receive Date: 20070227
  Receipt Date: 20060712
  Transmission Date: 20071010
  Serious: Yes (Other)
  Sender: FDA-Public Use
  Company Number: 455704

PATIENT
  Age: 18 Year
  Sex: Female
  Weight: 46.7 kg

DRUGS (1)
  1. ACCUTANE [Suspect]
     Indication: DRUG USE FOR UNKNOWN INDICATION
     Dosage: 30 MG DAILY 2 PER DAY, ORAL
     Route: 048
     Dates: start: 20060301, end: 20060616

REACTIONS (1)
  - DEPRESSION [None]
